FAERS Safety Report 25640065 (Version 4)
Quarter: 2025Q3

REPORT INFORMATION
  Report Type: Spontaneous
  Country: EU (occurrence: EU)
  Receive Date: 20250804
  Receipt Date: 20250923
  Transmission Date: 20251021
  Serious: No
  Sender: PFIZER
  Company Number: EU-PFIZER INC-PV202500092588

PATIENT
  Age: 15 Year
  Sex: Male
  Weight: 96 kg

DRUGS (1)
  1. GENOTROPIN [Suspect]
     Active Substance: SOMATROPIN
     Indication: Growth hormone deficiency
     Dosage: 2.8MG, DAILY FOR 6 DAYS A WEEK
     Route: 058
     Dates: start: 201710

REACTIONS (2)
  - Wrong technique in device usage process [Unknown]
  - Product packaging quantity issue [Unknown]
